FAERS Safety Report 13836443 (Version 8)
Quarter: 2017Q4

REPORT INFORMATION
  Report Type: Report from Study
  Country: US (occurrence: US)
  Receive Date: 20170804
  Receipt Date: 20171109
  Transmission Date: 20180320
  Serious: Yes (Death, Hospitalization)
  Sender: FDA-Public Use
  Company Number: US-ACTELION-A-NJ2017-157322

PATIENT
  Age: 46 Year
  Sex: Male
  Weight: 90.7 kg

DRUGS (3)
  1. VELETRI [Suspect]
     Active Substance: EPOPROSTENOL
     Dosage: 16 NG/KG, PER MIN
     Route: 042
  2. AMLODIPINE [Concomitant]
     Active Substance: AMLODIPINE BESYLATE
  3. VELETRI [Suspect]
     Active Substance: EPOPROSTENOL
     Indication: PULMONARY ARTERIAL HYPERTENSION
     Dosage: 8 NG/KG, PER MIN
     Route: 042
     Dates: start: 201707

REACTIONS (22)
  - Nausea [Unknown]
  - Dizziness [Unknown]
  - Diarrhoea [Recovered/Resolved]
  - Oedema [Unknown]
  - Retching [Unknown]
  - Abdominal distension [Unknown]
  - Vomiting [Unknown]
  - Constipation [Unknown]
  - Abdominal pain [Unknown]
  - Pain [Unknown]
  - Dyspnoea at rest [Unknown]
  - Flushing [Unknown]
  - Pain in extremity [Unknown]
  - Pain in jaw [Unknown]
  - Hypotension [Unknown]
  - Fatigue [Unknown]
  - Localised oedema [Unknown]
  - Oedema peripheral [Unknown]
  - Death [Fatal]
  - Dyspnoea [Unknown]
  - Dyspnoea exertional [Unknown]
  - Decreased appetite [Unknown]
